FAERS Safety Report 8093105-8 (Version None)
Quarter: 2012Q1

REPORT INFORMATION
  Report Type: 
  Country: None (occurrence: None)
  Receive Date: 20120128
  Receipt Date: 20110909
  Transmission Date: 20120608
  Serious: No
  Sender: FDA-Public Use
  Company Number: US-ABBOTT-11P-163-0849144-00

PATIENT
  Age: 55 Year
  Sex: Female

DRUGS (5)
  1. SUPPLEMENTS [Concomitant]
     Indication: PRODUCT USED FOR UNKNOWN INDICATION
     Dosage: DAILY
  2. VITAMIN TAB [Concomitant]
     Indication: PRODUCT USED FOR UNKNOWN INDICATION
     Dosage: DAILY
  3. HUMIRA [Suspect]
     Indication: CROHN'S DISEASE
     Dates: start: 20110719
  4. AMLODIPINE [Concomitant]
     Indication: HYPERTENSION
  5. LOMOTIL [Concomitant]
     Indication: DIARRHOEA

REACTIONS (5)
  - OEDEMA PERIPHERAL [None]
  - PAIN IN EXTREMITY [None]
  - ARTHRITIS [None]
  - SKIN WARM [None]
  - HYPERAESTHESIA [None]
